FAERS Safety Report 6089161-9 (Version None)
Quarter: 2009Q1

REPORT INFORMATION
  Report Type: 
  Country: None (occurrence: None)
  Receive Date: 20090224
  Receipt Date: 20090213
  Transmission Date: 20090719
  Serious: Yes (Other)
  Sender: FDA-Public Use
  Company Number: US-PFIZER INC-2007061751

PATIENT
  Sex: Female
  Weight: 63.492 kg

DRUGS (2)
  1. CHANTIX [Suspect]
     Indication: SMOKING CESSATION THERAPY
     Dosage: 1 MG, 2X/DAY
     Dates: start: 20070601, end: 20071201
  2. CELEXA [Concomitant]

REACTIONS (5)
  - CONSTIPATION [None]
  - MALAISE [None]
  - NAUSEA [None]
  - NEOPLASM [None]
  - RENAL IMPAIRMENT [None]
